FAERS Safety Report 8981965 (Version 1)
Quarter: 2012Q4

REPORT INFORMATION
  Report Type: 
  Country: US (occurrence: US)
  Receive Date: 20121212
  Receipt Date: 20121212
  Transmission Date: 20130627
  Serious: Yes (Death, Hospitalization)
  Sender: FDA-Public Use
  Company Number: US-ASTELLAS-1116420

PATIENT
  Age: 76 Year
  Sex: Male

DRUGS (2)
  1. TARCEVA [Suspect]
     Indication: MALIGNANT RESPIRATORY TRACT NEOPLASM
     Route: 065
     Dates: start: 20050411
  2. TARCEVA [Suspect]
     Indication: LUNG NEOPLASM MALIGNANT

REACTIONS (5)
  - Tachycardia [Unknown]
  - Dyspnoea [Unknown]
  - Malaise [Unknown]
  - Malignant pleural effusion [Unknown]
  - Lung neoplasm malignant [Fatal]
